FAERS Safety Report 5624592-X (Version None)
Quarter: 2008Q1

REPORT INFORMATION
  Report Type: 
  Country: None (occurrence: None)
  Receive Date: 20080213
  Receipt Date: 20080208
  Transmission Date: 20080703
  Serious: Yes (Hospitalization)
  Sender: FDA-Public Use
  Company Number: DE-ASTRAZENECA-2008PK00296

PATIENT
  Age: 51 Year
  Sex: Female

DRUGS (3)
  1. SEROQUEL [Suspect]
     Route: 048
     Dates: start: 20050101, end: 20070503
  2. VALPROATE SODIUM [Interacting]
     Route: 048
     Dates: start: 20050101, end: 20061101
  3. VALPROATE SODIUM [Interacting]
     Route: 048
     Dates: start: 20061101, end: 20070424

REACTIONS (2)
  - DRUG INTERACTION [None]
  - HEPATIC ENZYME INCREASED [None]
